FAERS Safety Report 4575422-9 (Version None)
Quarter: 2005Q1

REPORT INFORMATION
  Report Type: 
  Country: None (occurrence: None)
  Receive Date: 20050128
  Receipt Date: 20050128
  Transmission Date: 20050727
  Serious: Yes (Death)
  Sender: FDA-Public Use
  Company Number: None

PATIENT
  Sex: Male
  Weight: 94.8 kg

DRUGS (8)
  1. HYDROXYUREA [Suspect]
     Dosage: 500MG PO BID
     Route: 048
     Dates: start: 20041201
  2. GLEEVEC [Suspect]
     Dosage: 500MG PO BID
     Route: 048
     Dates: start: 20041201
  3. CARBATROL [Concomitant]
  4. LEXAPRO [Concomitant]
  5. ZANTAC [Concomitant]
  6. DECADRON [Concomitant]
  7. VIGRA [Concomitant]
  8. CLARINEX [Concomitant]

REACTIONS (10)
  - ATELECTASIS [None]
  - BACTERAEMIA [None]
  - DRUG TOXICITY [None]
  - GLIOBLASTOMA MULTIFORME [None]
  - HEMIPARESIS [None]
  - IMMUNOSUPPRESSION [None]
  - INTRACRANIAL TUMOUR HAEMORRHAGE [None]
  - MALIGNANT NEOPLASM PROGRESSION [None]
  - PNEUMONIA [None]
  - STAPHYLOCOCCAL INFECTION [None]
